FAERS Safety Report 4832719-2 (Version None)
Quarter: 2005Q4

REPORT INFORMATION
  Report Type: 
  Country: None (occurrence: None)
  Receive Date: 20051121
  Receipt Date: 20051109
  Transmission Date: 20060501
  Serious: Yes (Hospitalization)
  Sender: FDA-Public Use
  Company Number: 2005CG01847

PATIENT
  Age: 55 Year
  Sex: Female

DRUGS (6)
  1. ATACAND [Suspect]
     Route: 048
     Dates: end: 20050901
  2. SEMAP [Interacting]
     Route: 048
  3. XANAX [Concomitant]
  4. IMOVANE [Concomitant]
  5. VASTEN [Concomitant]
  6. IXEL [Concomitant]

REACTIONS (6)
  - DIZZINESS [None]
  - DRUG INTERACTION [None]
  - FALL [None]
  - HEADACHE [None]
  - LOSS OF CONSCIOUSNESS [None]
  - ORTHOSTATIC HYPOTENSION [None]
